FAERS Safety Report 5900196-6 (Version None)
Quarter: 2008Q3

REPORT INFORMATION
  Report Type: 
  Country: None (occurrence: None)
  Receive Date: 20080926
  Receipt Date: 20080923
  Transmission Date: 20090109
  Serious: Yes (Other)
  Sender: FDA-Public Use
  Company Number: FR-BRISTOL-MYERS SQUIBB COMPANY-14348007

PATIENT
  Age: 64 Year
  Sex: Female

DRUGS (1)
  1. IRBESARTAN [Suspect]
     Route: 048
     Dates: start: 20070101

REACTIONS (5)
  - ALLERGIC RESPIRATORY DISEASE [None]
  - COUGH [None]
  - DERMATITIS ALLERGIC [None]
  - FOOD ALLERGY [None]
  - RESPIRATORY DISORDER [None]
